FAERS Safety Report 4752629-9 (Version None)
Quarter: 2005Q3

REPORT INFORMATION
  Report Type: 
  Country: None (occurrence: None)
  Receive Date: 20050824
  Receipt Date: 20050815
  Transmission Date: 20060218
  Serious: Yes (Other)
  Sender: FDA-Public Use
  Company Number: 2005104052

PATIENT
  Age: 52 Year
  Sex: Male

DRUGS (17)
  1. BEXTRA [Suspect]
     Indication: ARTHRITIS
     Dosage: 40 MG(20 MG, 2  IN 1 D), ORAL
     Dates: start: 20030101, end: 20050101
  2. BEXTRA [Suspect]
     Indication: MYALGIA
     Dosage: 40 MG(20 MG, 2  IN 1 D), ORAL
     Dates: start: 20030101, end: 20050101
  3. IMITREX [Concomitant]
  4. ALL OTHER THERAPEUTIC PRODUCTS(ALL OTHER THERAPEUTIC PRODUCTS) [Concomitant]
  5. ARISTOCORT (TRIAMCINOLONE) [Concomitant]
  6. COPAXONE [Concomitant]
  7. HYDROXYZINE [Concomitant]
  8. DARVOCET-N 100 [Concomitant]
  9. METOPROLOL TARTRATE [Concomitant]
  10. DIAZEPAM [Concomitant]
  11. ACETYLSALICYLIC ACID SRT [Concomitant]
  12. ATIVAN [Concomitant]
  13. ZOLPIDEM TARTRATE [Concomitant]
  14. SOMA [Concomitant]
  15. QUININE SULFATE [Concomitant]
  16. PROTOPIC [Concomitant]
  17. OXYCONTIN [Concomitant]

REACTIONS (13)
  - AMNESIA [None]
  - ANGIOPATHY [None]
  - ANXIETY [None]
  - ARTERIAL DISORDER [None]
  - CEREBROVASCULAR ACCIDENT [None]
  - HEADACHE [None]
  - HYDROCEPHALUS [None]
  - MEDICATION ERROR [None]
  - NERVOUSNESS [None]
  - PYREXIA [None]
  - TRANSIENT ISCHAEMIC ATTACK [None]
  - VISUAL ACUITY REDUCED [None]
  - WEIGHT DECREASED [None]
